FAERS Safety Report 13007840 (Version 6)
Quarter: 2017Q1

REPORT INFORMATION
  Report Type: Report from Study
  Country: GB (occurrence: GB)
  Receive Date: 20161207
  Receipt Date: 20170302
  Transmission Date: 20170428
  Serious: Yes (Death, Hospitalization, Other)
  Sender: FDA-Public Use
  Company Number: GB-BRISTOL-MYERS SQUIBB COMPANY-BMS-2016-102462

PATIENT
  Age: 86 Year
  Sex: Female

DRUGS (1)
  1. ABATACEPT [Suspect]
     Active Substance: ABATACEPT
     Indication: PRODUCT USED FOR UNKNOWN INDICATION
     Dosage: 125 MG, QWK
     Route: 058
     Dates: start: 20160816

REACTIONS (4)
  - Death [Fatal]
  - Incarcerated hernia repair [Unknown]
  - Abdominal pain upper [Unknown]
  - Incarcerated hernia [Unknown]

NARRATIVE: CASE EVENT DATE: 20161120
